FAERS Safety Report 10348999 (Version 4)
Quarter: 2014Q3

REPORT INFORMATION
  Report Type: Report from Study
  Country: CZ (occurrence: CZ)
  Receive Date: 20140729
  Receipt Date: 20140825
  Transmission Date: 20150326
  Serious: Yes (Life-Threatening, Hospitalization)
  Sender: FDA-Public Use
  Company Number: CZ-ONYX-2014-1199

PATIENT
  Age: 80 Year
  Sex: Male
  Weight: 103 kg

DRUGS (28)
  1. PREDNISONE. [Suspect]
     Active Substance: PREDNISONE
     Indication: PLASMA CELL MYELOMA
     Route: 048
     Dates: start: 20140414, end: 20140529
  2. SUMETROLIM [Concomitant]
     Indication: ANTIBIOTIC THERAPY
     Route: 048
     Dates: start: 20140414, end: 20140629
  3. SUPPOSITORIA GLYCERINE [Concomitant]
     Indication: CONSTIPATION
     Route: 054
     Dates: start: 20140512, end: 20140529
  4. CARFILZOMIB [Suspect]
     Active Substance: CARFILZOMIB
     Route: 042
     Dates: start: 20140526, end: 20140603
  5. MELPHALAN [Suspect]
     Active Substance: MELPHALAN
     Indication: PLASMA CELL MYELOMA
     Route: 048
     Dates: start: 20140414, end: 20140529
  6. DIAPREL [Concomitant]
     Active Substance: GLICLAZIDE
     Indication: DIABETES MELLITUS
     Route: 048
     Dates: start: 20140325, end: 20140527
  7. VEROSPIRON [Concomitant]
     Active Substance: SPIRONOLACTONE
     Indication: MYOCARDIAL ISCHAEMIA
     Route: 048
     Dates: end: 20140527
  8. HELICID [Concomitant]
     Indication: PROPHYLAXIS AGAINST GASTROINTESTINAL ULCER
     Route: 048
     Dates: start: 20140414, end: 20140617
  9. DILATREND [Concomitant]
     Active Substance: CARVEDILOL
     Indication: DYSPNOEA
     Route: 048
     Dates: start: 20140505, end: 20140616
  10. FRAXIPARINE [Concomitant]
     Active Substance: NADROPARIN CALCIUM
     Indication: THROMBOSIS PROPHYLAXIS
     Route: 058
     Dates: start: 20140416, end: 20140530
  11. LACTULOSA [Concomitant]
     Indication: CONSTIPATION
     Route: 048
     Dates: start: 20140422
  12. DEXAMETHASONE. [Concomitant]
     Active Substance: DEXAMETHASONE
     Indication: PLASMA CELL MYELOMA
     Route: 048
     Dates: start: 20140422, end: 20140513
  13. CARFILZOMIB [Suspect]
     Active Substance: CARFILZOMIB
     Indication: PLASMA CELL MYELOMA
     Route: 042
     Dates: start: 20140414, end: 20140415
  14. SORTIS [Concomitant]
     Active Substance: ATORVASTATIN
     Indication: MYOCARDIAL ISCHAEMIA
     Route: 048
     Dates: end: 20140630
  15. FURON [Concomitant]
     Indication: MYOCARDIAL ISCHAEMIA
     Route: 048
     Dates: end: 20140504
  16. HERPESIN [Concomitant]
     Indication: ANTIVIRAL TREATMENT
     Route: 048
     Dates: start: 20140414, end: 20140617
  17. DEGAN [Concomitant]
     Active Substance: METOCLOPRAMIDE HYDROCHLORIDE
     Indication: ANTIEMETIC SUPPORTIVE CARE
     Route: 048
     Dates: start: 20140414, end: 20140630
  18. LOZAP [Concomitant]
     Active Substance: LOSARTAN
     Indication: DYSPNOEA
     Route: 048
     Dates: start: 20140505, end: 20140525
  19. CORSODYL [Concomitant]
     Active Substance: CHLORHEXIDINE GLUCONATE
     Indication: INFECTION PROPHYLAXIS
     Route: 048
     Dates: start: 20140414, end: 20140527
  20. CARFILZOMIB [Suspect]
     Active Substance: CARFILZOMIB
     Route: 042
     Dates: start: 20140623, end: 20140624
  21. CORDARONE [Concomitant]
     Active Substance: AMIODARONE HYDROCHLORIDE
     Indication: ATRIAL FIBRILLATION
     Route: 048
     Dates: end: 20140617
  22. BONDRONAT [Concomitant]
     Active Substance: IBANDRONIC ACID
     Indication: BONE DISORDER
     Route: 048
     Dates: start: 2012, end: 20140527
  23. FURON [Concomitant]
     Route: 048
     Dates: start: 20140505, end: 20140527
  24. TAMSULOSIN HCL MYLAN [Concomitant]
     Indication: BENIGN PROSTATIC HYPERPLASIA
     Route: 048
     Dates: end: 20140617
  25. DHC CONT [Concomitant]
     Indication: SPINAL PAIN
     Route: 048
     Dates: start: 20140422, end: 20140616
  26. CARFILZOMIB [Suspect]
     Active Substance: CARFILZOMIB
     Route: 042
     Dates: start: 20140422, end: 20140513
  27. CALCICHEW D3 [Concomitant]
     Active Substance: CALCIUM\CHOLECALCIFEROL
     Indication: BONE DISORDER
     Route: 048
     Dates: end: 20140617
  28. ZOFRAN [Concomitant]
     Active Substance: ONDANSETRON HYDROCHLORIDE
     Indication: ANTIEMETIC SUPPORTIVE CARE
     Route: 060
     Dates: start: 20140414, end: 20140527

REACTIONS (2)
  - Cardiac failure [Recovered/Resolved]
  - Adenocarcinoma gastric [Recovered/Resolved]

NARRATIVE: CASE EVENT DATE: 20140528
